FAERS Safety Report 23257722 (Version 3)
Quarter: 2024Q1

REPORT INFORMATION
  Report Type: Spontaneous
  Country: JP (occurrence: JP)
  Receive Date: 20231204
  Receipt Date: 20240304
  Transmission Date: 20240410
  Serious: Yes (Hospitalization, Other)
  Sender: FDA-Public Use
  Company Number: JP-EXELIXIS-CABO-23071159

PATIENT
  Age: 74 Year
  Sex: Male
  Weight: 73.4 kg

DRUGS (4)
  1. CABOMETYX [Suspect]
     Active Substance: CABOZANTINIB S-MALATE
     Indication: Rectal cancer
     Dosage: 20 MG
     Route: 048
     Dates: start: 20230620, end: 20230822
  2. OPDIVO [Suspect]
     Active Substance: NIVOLUMAB
     Indication: Rectal cancer
     Dosage: 240 MG
     Route: 041
     Dates: start: 20220927, end: 20230606
  3. AZELNIDIPINE\OLMESARTAN MEDOXOMIL [Concomitant]
     Active Substance: AZELNIDIPINE\OLMESARTAN MEDOXOMIL
     Indication: Product used for unknown indication
     Dosage: UNK
     Route: 048
  4. ANAGLIPTIN [Concomitant]
     Active Substance: ANAGLIPTIN
     Indication: Product used for unknown indication
     Dosage: UNK
     Route: 048

REACTIONS (8)
  - Nausea [Unknown]
  - Decreased appetite [Unknown]
  - Lung opacity [Unknown]
  - Interstitial lung disease [Recovering/Resolving]
  - Lymphocyte percentage abnormal [Unknown]
  - Differential white blood cell count abnormal [Unknown]
  - Pyrexia [Unknown]
  - Eosinophil percentage increased [Unknown]

NARRATIVE: CASE EVENT DATE: 20230822
